FAERS Safety Report 7080855-5 (Version None)
Quarter: 2010Q4

REPORT INFORMATION
  Report Type: 
  Country: None (occurrence: None)
  Receive Date: 20101103
  Receipt Date: 20101025
  Transmission Date: 20110411
  Serious: Yes (Other)
  Sender: FDA-Public Use
  Company Number: US-PFIZER INC-2010136549

PATIENT
  Sex: Female
  Weight: 93.424 kg

DRUGS (13)
  1. GEODON [Suspect]
     Indication: BIPOLAR DISORDER
     Dosage: 20 MG, 2X/DAY
     Route: 048
     Dates: start: 20101008, end: 20101001
  2. GEODON [Suspect]
     Dosage: 40 MG, 2X/DAY
     Route: 048
     Dates: start: 20101001
  3. LITHIUM CARBONATE [Concomitant]
     Indication: BIPOLAR DISORDER
     Dosage: 900 MG, 1X/DAY
     Route: 048
     Dates: start: 20100805
  4. MONOPRIL [Concomitant]
     Dosage: 10 MG, 2X/DAY
  5. SYNTHROID [Concomitant]
     Dosage: UNK
  6. GLUCOPHAGE [Concomitant]
     Dosage: 500 MG, 1X/DAY
  7. HYDROCHLOROTHIAZIDE [Concomitant]
     Dosage: UNK
  8. VISTARIL [Concomitant]
     Dosage: UNK
  9. BENADRYL [Concomitant]
     Dosage: UNK
  10. TRAZODONE [Concomitant]
     Dosage: UNK
  11. LORTAB [Concomitant]
     Dosage: UNK
  12. ZANAFLEX [Concomitant]
     Dosage: UNK
  13. VOLTAREN [Concomitant]
     Dosage: UNK

REACTIONS (7)
  - CHILLS [None]
  - HYPERHIDROSIS [None]
  - HYPOAESTHESIA [None]
  - MEMORY IMPAIRMENT [None]
  - PERIPHERAL COLDNESS [None]
  - SLEEP APNOEA SYNDROME [None]
  - TREMOR [None]
